FAERS Safety Report 21432945 (Version 3)
Quarter: 2022Q4

REPORT INFORMATION
  Report Type: Report from Study
  Country: US (occurrence: US)
  Receive Date: 20221010
  Receipt Date: 20221228
  Transmission Date: 20230112
  Serious: No
  Sender: FDA-Public Use
  Company Number: US-ABBVIE-4142302

PATIENT
  Sex: Female

DRUGS (2)
  1. SKYRIZI [Suspect]
     Active Substance: RISANKIZUMAB-RZAA
     Indication: Psoriasis
     Route: 058
  2. ACITRETINE CF [Concomitant]
     Indication: Psoriasis

REACTIONS (7)
  - Condition aggravated [Recovering/Resolving]
  - Peripheral swelling [Recovering/Resolving]
  - Skin exfoliation [Recovering/Resolving]
  - Pain in extremity [Recovering/Resolving]
  - Psoriasis [Unknown]
  - Pustule [Recovering/Resolving]
  - Alopecia [Recovering/Resolving]
